FAERS Safety Report 16978250 (Version 3)
Quarter: 2019Q4

REPORT INFORMATION
  Report Type: Spontaneous
  Country: BR (occurrence: BR)
  Receive Date: 20191031
  Receipt Date: 20191218
  Transmission Date: 20200122
  Serious: Yes (Hospitalization, Disabling, Other)
  Sender: FDA-Public Use
  Company Number: BR-SA-2018SA242702

PATIENT
  Sex: Female
  Weight: 84 kg

DRUGS (21)
  1. IBUPRIL [Concomitant]
     Indication: PAIN
     Dosage: WHEN SHE FELLS STRONG PAINS. SHE USES ONE OR TWO TIMES PER DAY
     Route: 048
  2. ACETYLSALICYLIC ACID [Concomitant]
     Active Substance: ASPIRIN
     Indication: ANTICOAGULANT THERAPY
     Dosage: 2 AT MORNING AND 2 AT NIGHT, BID
     Route: 048
     Dates: start: 2000
  3. LOSARTAN POTASSIUM. [Suspect]
     Active Substance: LOSARTAN POTASSIUM
     Indication: BLOOD PRESSURE INCREASED
     Dosage: ONE TABLET IN THE MORNING AND ONE TABLET AT NIGHT
     Route: 048
     Dates: start: 2000
  4. NIFEDIPINE. [Concomitant]
     Active Substance: NIFEDIPINE
     Indication: HEAD DEFORMITY
     Dosage: TWICE A DAY; 1 TABLET AT MORNING  AND 1 TABLET AT NIGHT
     Route: 048
     Dates: start: 2000
  5. CLONAZEPAM. [Concomitant]
     Active Substance: CLONAZEPAM
     Indication: SLEEP APNOEA SYNDROME
     Dosage: 2 DF, HS
     Route: 048
     Dates: start: 2003
  6. APRESOLINA [Concomitant]
     Active Substance: HYDRALAZINE HYDROCHLORIDE
     Indication: DIURETIC THERAPY
  7. ATENOLOL. [Concomitant]
     Active Substance: ATENOLOL
     Indication: HYPERTENSION
  8. APRESOLINA [Concomitant]
     Active Substance: HYDRALAZINE HYDROCHLORIDE
     Indication: TYPE 2 DIABETES MELLITUS
     Dosage: ONE TABLET IN THE MORNING AND ONE TABLET AT NIGHT
     Route: 048
     Dates: start: 2001
  9. APIDRA [Suspect]
     Active Substance: INSULIN GLULISINE
     Indication: TYPE 2 DIABETES MELLITUS
     Dosage: 10 IU, TID
     Route: 058
     Dates: start: 201706
  10. ATENOLOL. [Concomitant]
     Active Substance: ATENOLOL
     Indication: CARDIAC DISORDER
     Dosage: 2 DF (1 TABLET AT MORNING AND 1 TABLET AT NIGHT), QD
     Route: 048
     Dates: start: 2003
  11. METFORMIN HYDROCHLORIDE. [Suspect]
     Active Substance: METFORMIN HYDROCHLORIDE
     Indication: TYPE 2 DIABETES MELLITUS
     Dosage: 1 TABLET AT THE BREAKFAST AND ONE TABLET AT NIGHT
     Route: 048
     Dates: start: 2001
  12. LANTUS [Suspect]
     Active Substance: INSULIN GLARGINE
     Indication: TYPE 2 DIABETES MELLITUS
     Dosage: 34.5 IU, QD
     Route: 058
     Dates: start: 201706
  13. ATENSINA [Concomitant]
     Active Substance: CLONIDINE
     Dosage: 200 MG, QD
     Route: 048
     Dates: start: 2001
  14. MORPHINE [Concomitant]
     Active Substance: MORPHINE
     Indication: PAIN
     Dosage: WHEN SHE FELLS STRONG PAINS CAUSED BY THE LACK OF INSULIN, CARDIOPATHY AND ARRHYTHMIA
     Route: 042
     Dates: start: 2013
  15. LANTUS [Suspect]
     Active Substance: INSULIN GLARGINE
     Dosage: UNK UNK, TID
     Route: 065
  16. APIDRA [Suspect]
     Active Substance: INSULIN GLULISINE
     Dosage: UNK UNK, QID
     Route: 058
     Dates: start: 2000
  17. SIMVASTATIN. [Suspect]
     Active Substance: SIMVASTATIN
     Indication: BLOOD CHOLESTEROL
     Dosage: 1 DF, HS
     Route: 048
     Dates: start: 2000
  18. SIMVASTATIN. [Suspect]
     Active Substance: SIMVASTATIN
     Dosage: 20 MG, QD
     Route: 048
     Dates: start: 2001
  19. ACETYLSALICYLIC ACID [Concomitant]
     Active Substance: ASPIRIN
     Indication: CARDIAC DISORDER
     Dosage: ONE TABLET IN THE MORNING AND ONE TABLET AT NIGHT
     Route: 048
     Dates: start: 2001
  20. FLUOXETINE HYDROCHLORIDE. [Concomitant]
     Active Substance: FLUOXETINE HYDROCHLORIDE
     Indication: DEPRESSION
     Dosage: 2 DF, QD
     Route: 048
     Dates: start: 2004
  21. CHLORTHALIDONE. [Concomitant]
     Active Substance: CHLORTHALIDONE
     Indication: CARDIAC DISORDER
     Dosage: 25 MG, BID
     Route: 048
     Dates: start: 2001

REACTIONS (17)
  - Dizziness [Unknown]
  - Expired device used [Unknown]
  - Pain [Unknown]
  - Gait disturbance [Unknown]
  - Product use issue [Unknown]
  - Asthenia [Unknown]
  - Syncope [Unknown]
  - Blood glucose increased [Unknown]
  - Cerebrovascular accident [Unknown]
  - Arrhythmia [Unknown]
  - Physical disability [Unknown]
  - Visual impairment [Unknown]
  - Product storage error [Unknown]
  - Wrong technique in device usage process [Unknown]
  - Multiple use of single-use product [Unknown]
  - Speech disorder [Unknown]
  - Inappropriate schedule of product administration [Unknown]

NARRATIVE: CASE EVENT DATE: 2001
